FAERS Safety Report 21759469 (Version 1)
Quarter: 2022Q4

REPORT INFORMATION
  Report Type: Spontaneous
  Country: US (occurrence: US)
  Receive Date: 20221221
  Receipt Date: 20221221
  Transmission Date: 20230112
  Serious: Yes (Other)
  Sender: FDA-Public Use
  Company Number: US-NALPROPION PHARMACEUTICALS INC.-US-2022CUR024047

PATIENT
  Sex: Female

DRUGS (2)
  1. CONTRAVE [Suspect]
     Active Substance: BUPROPION HYDROCHLORIDE\NALTREXONE HYDROCHLORIDE
     Indication: Weight control
     Dosage: STRENGTH 8/90 MG, UNKNOWN DOSE AND FREQUENCY
     Route: 048
  2. CONTRAVE [Suspect]
     Active Substance: BUPROPION HYDROCHLORIDE\NALTREXONE HYDROCHLORIDE
     Dosage: STRENGTH 8/90 MG, 2 PILLS A DAY FOR ABOUT 2 WEEKS
     Route: 048

REACTIONS (10)
  - Psychiatric symptom [Unknown]
  - Anger [Unknown]
  - Breast pain [Unknown]
  - Compulsive shopping [Unknown]
  - Shoplifting [Unknown]
  - Aggression [Unknown]
  - Feeling abnormal [Unknown]
  - Product dose omission issue [Unknown]
  - Drug titration error [Unknown]
  - Patient dissatisfaction with treatment [Unknown]
